FAERS Safety Report 8531293-7 (Version None)
Quarter: 2012Q3

REPORT INFORMATION
  Report Type: 
  Country: None (occurrence: None)
  Receive Date: 20120710
  Receipt Date: 20120629
  Transmission Date: 20120928
  Serious: Yes (Disabling, Other)
  Sender: FDA-Public Use
  Company Number: E2B-00000273

PATIENT
  Sex: Male
  Weight: 79.3795 kg

DRUGS (2)
  1. AMLODIPINE BESYLATE [Suspect]
     Indication: HYPERTENSION
     Dosage: 5 MG (5 MG, 1 IN 1 D), PER ORAL
     Route: 048
  2. HYDROCHLOROTHIAZIDE (TABLETS) [Concomitant]

REACTIONS (1)
  - DEAFNESS [None]
